FAERS Safety Report 8949132 (Version 2)
Quarter: 2012Q4

REPORT INFORMATION
  Report Type: 
  Country: CA (occurrence: CA)
  Receive Date: 20121206
  Receipt Date: 20121219
  Transmission Date: 20130627
  Serious: Yes (Hospitalization)
  Sender: FDA-Public Use
  Company Number: CA-B.I. PHARMACEUTICALS,INC./RIDGEFIELD-2012-CN-02441CN

PATIENT
  Age: 70 Year
  Sex: Male

DRUGS (3)
  1. PRADAX [Suspect]
     Indication: CEREBROVASCULAR ACCIDENT PROPHYLAXIS
     Dosage: 220 mg
     Route: 048
     Dates: start: 2012, end: 201211
  2. PRADAX [Suspect]
     Indication: CARDIAC VALVE PROSTHESIS USER
  3. MEDICATION NOT FURTHER SPECIFIED [Concomitant]

REACTIONS (2)
  - Embolic stroke [Not Recovered/Not Resolved]
  - Off label use [Unknown]
